FAERS Safety Report 6277405-X (Version None)
Quarter: 2009Q3

REPORT INFORMATION
  Report Type: 
  Country: None (occurrence: None)
  Receive Date: 20090722
  Receipt Date: 20090512
  Transmission Date: 20100115
  Serious: No
  Sender: FDA-Public Use
  Company Number: US-BRISTOL-MYERS SQUIBB COMPANY-14622153

PATIENT
  Age: 87 Year
  Sex: Female

DRUGS (1)
  1. COUMADIN [Suspect]
     Dosage: TAKING FOR 7 YEARS

REACTIONS (1)
  - MENSTRUAL DISORDER [None]
